FAERS Safety Report 25339306 (Version 2)
Quarter: 2025Q2

REPORT INFORMATION
  Report Type: Report from Study
  Country: US (occurrence: US)
  Receive Date: 20250521
  Receipt Date: 20250529
  Transmission Date: 20250717
  Serious: Yes (Death, Other)
  Sender: ACADIA PHARMACEUTICALS
  Company Number: US-ACADIA PHARMACEUTICALS INC.-ACA-2025-PIM-005935

PATIENT
  Sex: Female

DRUGS (9)
  1. NUPLAZID [Suspect]
     Active Substance: PIMAVANSERIN TARTRATE
     Indication: Hallucination
     Dosage: 34 MILLIGRAM, QD
     Route: 048
     Dates: start: 20250421
  2. PEPCID [Concomitant]
     Active Substance: FAMOTIDINE
  3. ONELAX [BISACODYL] [Concomitant]
  4. ELIQUIS [Concomitant]
     Active Substance: APIXABAN
  5. LEVOTHYROXINE [Concomitant]
     Active Substance: LEVOTHYROXINE
  6. ALBUTEROL [Concomitant]
     Active Substance: ALBUTEROL
  7. VITAMIN B12 [Concomitant]
     Active Substance: CYANOCOBALAMIN
  8. MORPHINE [Concomitant]
     Active Substance: MORPHINE
     Dates: end: 20250505
  9. ZOFRAN [Concomitant]
     Active Substance: ONDANSETRON HYDROCHLORIDE
     Dates: end: 20250505

REACTIONS (4)
  - Pulmonary embolism [Fatal]
  - Dementia Alzheimer^s type [Fatal]
  - Parkinson^s disease [Fatal]
  - Dementia [Fatal]
